FAERS Safety Report 4864776-1 (Version None)
Quarter: 2005Q4

REPORT INFORMATION
  Report Type: 
  Country: None (occurrence: None)
  Receive Date: 20051201
  Receipt Date: 20050708
  Transmission Date: 20060501
  Serious: No
  Sender: FDA-Public Use
  Company Number: 2005PV000265

PATIENT
  Age: 63 Year
  Sex: Male
  Weight: 138.3471 kg

DRUGS (8)
  1. BYETTA [Suspect]
     Indication: DIABETES MELLITUS NON-INSULIN-DEPENDENT
     Dosage: 5 UG; BID; SC
     Route: 058
     Dates: start: 20050705
  2. GLUCOTROL XL [Concomitant]
  3. GLUCOPHAGE [Concomitant]
  4. COREG [Concomitant]
  5. PLAVIX [Concomitant]
  6. VALSARTAN [Concomitant]
  7. NIASPAN [Concomitant]
  8. LIPITOR [Concomitant]

REACTIONS (3)
  - BLOOD GLUCOSE INCREASED [None]
  - INJECTION SITE SWELLING [None]
  - NAUSEA [None]
